FAERS Safety Report 24675790 (Version 2)
Quarter: 2024Q4

REPORT INFORMATION
  Report Type: Spontaneous
  Country: IN (occurrence: IN)
  Receive Date: 20241128
  Receipt Date: 20241226
  Transmission Date: 20250115
  Serious: Yes (Hospitalization)
  Sender: PFIZER
  Company Number: IN-PFIZER INC-PV202400134081

PATIENT
  Age: 62 Year
  Sex: Male

DRUGS (5)
  1. INOTUZUMAB OZOGAMICIN [Suspect]
     Active Substance: INOTUZUMAB OZOGAMICIN
     Indication: B-cell type acute leukaemia
     Dosage: 0.8 MG/M2 (DAY 1)
     Route: 042
     Dates: start: 20240930
  2. INOTUZUMAB OZOGAMICIN [Suspect]
     Active Substance: INOTUZUMAB OZOGAMICIN
     Dosage: 0.5 MG/M2 (DAY 8)
     Route: 042
     Dates: start: 20241008
  3. INOTUZUMAB OZOGAMICIN [Suspect]
     Active Substance: INOTUZUMAB OZOGAMICIN
     Dosage: 1 MG
     Route: 042
  4. INOTUZUMAB OZOGAMICIN [Suspect]
     Active Substance: INOTUZUMAB OZOGAMICIN
     Dosage: 0.8 MG/M2, 1 VIAL (DOSE 1)
     Route: 042
     Dates: start: 20241101
  5. INOTUZUMAB OZOGAMICIN [Suspect]
     Active Substance: INOTUZUMAB OZOGAMICIN
     Dosage: 0.5 MG/M2, 1 VIAL (DOSE 2)
     Route: 042
     Dates: start: 20241115

REACTIONS (7)
  - General physical health deterioration [Unknown]
  - Malaise [Unknown]
  - Infection [Unknown]
  - White blood cell count decreased [Unknown]
  - Platelet count decreased [Unknown]
  - Pyrexia [Unknown]
  - Viral infection [Unknown]

NARRATIVE: CASE EVENT DATE: 20240101
